FAERS Safety Report 16633412 (Version 2)
Quarter: 2019Q3

REPORT INFORMATION
  Report Type: Spontaneous
  Country: JP (occurrence: JP)
  Receive Date: 20190725
  Receipt Date: 20190801
  Transmission Date: 20191004
  Serious: Yes (Other)
  Sender: FDA-Public Use
  Company Number: PHJP2019JP009665

PATIENT
  Sex: Female

DRUGS (2)
  1. NEORAL [Suspect]
     Active Substance: CYCLOSPORINE
     Indication: OPHTHALMOLOGIC TREATMENT
     Dosage: UNK
     Route: 048
  2. HUMIRA [Suspect]
     Active Substance: ADALIMUMAB
     Indication: OPHTHALMOLOGIC TREATMENT
     Dosage: UNK
     Route: 042

REACTIONS (12)
  - Visual acuity reduced [Unknown]
  - Dizziness [Unknown]
  - Tinnitus [Unknown]
  - Musculoskeletal stiffness [Unknown]
  - Heart rate increased [Unknown]
  - Arrhythmia [Unknown]
  - Cataract [Unknown]
  - Hypoaesthesia [Unknown]
  - Discomfort [Unknown]
  - Muscle atrophy [Unknown]
  - Limb discomfort [Unknown]
  - Oedema peripheral [Unknown]
